FAERS Safety Report 5737196-5 (Version None)
Quarter: 2008Q2

REPORT INFORMATION
  Report Type: 
  Country: None (occurrence: None)
  Receive Date: 20080512
  Receipt Date: 20080512
  Transmission Date: 20081010
  Serious: Yes (Death, Other)
  Sender: FDA-Public Use
  Company Number: None

PATIENT
  Age: 75 Year
  Sex: Female
  Weight: 45.3597 kg

DRUGS (2)
  1. DIGITEK   125 MG   MYLAN/BERTEK [Suspect]
     Indication: CARDIAC DISORDER
     Dosage: 125 MG ONE DAILY IV
     Route: 042
     Dates: start: 20080120, end: 20080316
  2. DIGITEK  250 MG  MYLAN/BERTEK [Suspect]
     Indication: CARDIAC FAILURE
     Dates: start: 20080324, end: 20080505

REACTIONS (2)
  - PHARMACEUTICAL PRODUCT COMPLAINT [None]
  - THERAPEUTIC AGENT TOXICITY [None]
